FAERS Safety Report 9564496 (Version 2)
Quarter: 2013Q3

REPORT INFORMATION
  Report Type: Report from Study
  Country: US (occurrence: US)
  Receive Date: 20130930
  Receipt Date: 20130930
  Transmission Date: 20140515
  Serious: Yes (Hospitalization)
  Sender: FDA-Public Use
  Company Number: US-009507513-1308USA013565

PATIENT
  Age: 85 Year
  Sex: Male
  Weight: 79.37 kg

DRUGS (34)
  1. BLINDED PLACEBO [Suspect]
     Indication: PROPHYLAXIS
     Route: 058
     Dates: start: 20130820, end: 20130820
  2. BLINDED POST TRIAL THERAPY [Suspect]
     Indication: PROPHYLAXIS
     Route: 058
     Dates: start: 20130820, end: 20130820
  3. BLINDED PRE TRIAL THERAPY [Suspect]
     Indication: PROPHYLAXIS
     Route: 058
     Dates: start: 20130820, end: 20130820
  4. BLINDED VARICELLA-ZOSTER VIRUS VACCINE INACTIVATED (OKA/MERCK) [Suspect]
     Indication: PROPHYLAXIS
     Route: 058
     Dates: start: 20130820, end: 20130820
  5. BLINDED PLACEBO [Suspect]
     Route: 058
     Dates: start: 20130528, end: 20130528
  6. BLINDED POST TRIAL THERAPY [Suspect]
     Route: 058
     Dates: start: 20130528, end: 20130528
  7. BLINDED PRE TRIAL THERAPY [Suspect]
     Route: 058
     Dates: start: 20130528, end: 20130528
  8. BLINDED VARICELLA-ZOSTER VIRUS VACCINE INACTIVATED (OKA/MERCK) [Suspect]
     Route: 058
     Dates: start: 20130528, end: 20130528
  9. BLINDED PLACEBO [Suspect]
     Route: 058
     Dates: start: 20130625, end: 20130625
  10. BLINDED POST TRIAL THERAPY [Suspect]
     Route: 058
     Dates: start: 20130625, end: 20130625
  11. BLINDED PRE TRIAL THERAPY [Suspect]
     Route: 058
     Dates: start: 20130625, end: 20130625
  12. BLINDED VARICELLA-ZOSTER VIRUS VACCINE INACTIVATED (OKA/MERCK) [Suspect]
     Route: 058
     Dates: start: 20130625, end: 20130625
  13. BLINDED PLACEBO [Suspect]
     Route: 058
     Dates: start: 20130723, end: 20130723
  14. BLINDED POST TRIAL THERAPY [Suspect]
     Route: 058
     Dates: start: 20130723, end: 20130723
  15. BLINDED PRE TRIAL THERAPY [Suspect]
     Route: 058
     Dates: start: 20130723, end: 20130723
  16. BLINDED VARICELLA-ZOSTER VIRUS VACCINE INACTIVATED (OKA/MERCK) [Suspect]
     Route: 058
     Dates: start: 20130723, end: 20130723
  17. ROCEPHIN [Suspect]
     Indication: PNEUMONIA
     Dosage: 1 G, QD
     Route: 042
     Dates: start: 20130821
  18. AZITHROMYCIN [Suspect]
     Indication: PNEUMONIA
     Dosage: 250 MG, BID
     Route: 042
     Dates: start: 20130821
  19. OXYGEN [Suspect]
     Indication: ACUTE RESPIRATORY FAILURE
     Dosage: TOTAL DAILY DOSE: 2 LPM CONTINOUS
     Route: 055
     Dates: start: 20130821
  20. OXYGEN [Suspect]
     Indication: HYPOXIA
  21. ACIDOPHILUS [Concomitant]
     Dosage: UNK
     Dates: start: 20130408
  22. THIOCTIC ACID [Concomitant]
     Dosage: UNK
     Dates: start: 20130328
  23. ASPIRIN [Concomitant]
     Dosage: UNK
     Route: 048
     Dates: start: 200606
  24. CRANBERRY [Concomitant]
     Dosage: UNK
     Dates: start: 201105
  25. FLOMAX (TAMSULOSIN HYDROCHLORIDE) [Concomitant]
     Dosage: UNK
     Dates: start: 201106
  26. FUROSEMIDE [Concomitant]
     Dosage: UNK
     Route: 048
     Dates: start: 200606
  27. GLIPIZIDE [Concomitant]
     Dosage: UNK
     Dates: start: 201106
  28. LEVOFLOXACIN [Concomitant]
     Dosage: UNK
     Dates: start: 20130426
  29. ONDANSETRON HYDROCHLORIDE [Concomitant]
     Dosage: UNK
     Route: 065
     Dates: start: 20130429
  30. LEVOTHYROXINE SODIUM [Concomitant]
     Dosage: UNK
     Route: 048
     Dates: start: 199806
  31. POTASSIUM CITRATE [Concomitant]
     Dosage: UNK
     Dates: start: 20120530
  32. SPIRONOLACTONE [Concomitant]
     Dosage: UNK
     Dates: start: 200606
  33. THERAGRAN-M [Concomitant]
     Dosage: UNK
     Dates: start: 199306
  34. AZACITIDINE [Concomitant]
     Dosage: UNK
     Dates: start: 20130506

REACTIONS (3)
  - Pneumonia [Recovered/Resolved with Sequelae]
  - Leukocytosis [Recovered/Resolved]
  - Renal failure acute [Unknown]
